FAERS Safety Report 4821936-3 (Version None)
Quarter: 2005Q4

REPORT INFORMATION
  Report Type: 
  Country: None (occurrence: None)
  Receive Date: 20051103
  Receipt Date: 20051024
  Transmission Date: 20060501
  Serious: Yes (Other)
  Sender: FDA-Public Use
  Company Number: 2005BH002486

PATIENT

DRUGS (1)
  1. PROPOFOL [Suspect]
     Indication: SEDATION
     Dosage: 1.5 MG/KG;IV
     Route: 042

REACTIONS (2)
  - OXYGEN SATURATION DECREASED [None]
  - PROCEDURAL COMPLICATION [None]
